FAERS Safety Report 6126065-7 (Version None)
Quarter: 2009Q1

REPORT INFORMATION
  Report Type: 
  Country: None (occurrence: None)
  Receive Date: 20090318
  Receipt Date: 20090311
  Transmission Date: 20090719
  Serious: Yes (Death)
  Sender: FDA-Public Use
  Company Number: 187619ISR

PATIENT
  Age: 81 Year
  Sex: Male

DRUGS (1)
  1. WARFARIN SODIUM [Suspect]
     Indication: CARDIAC VALVE PROSTHESIS USER
     Dosage: (2 MG) ORAL
     Route: 048
     Dates: start: 19900101, end: 20080513

REACTIONS (2)
  - HAEMORRHAGE [None]
  - INTERNATIONAL NORMALISED RATIO INCREASED [None]
